FAERS Safety Report 16850672 (Version 1)
Quarter: 2019Q3

REPORT INFORMATION
  Report Type: Spontaneous
  Country: US (occurrence: US)
  Receive Date: 20190925
  Receipt Date: 20190925
  Transmission Date: 20191005
  Serious: No
  Sender: FDA-Public Use
  Company Number: US-THERAPEUTICSMD-2019TMD01716

PATIENT
  Age: 74 Year
  Sex: Female
  Weight: 52.61 kg

DRUGS (14)
  1. LOSARTAN. [Concomitant]
     Active Substance: LOSARTAN
     Dosage: 100 MG, 1X/DAY
  2. ROSUVASTATIN. [Concomitant]
     Active Substance: ROSUVASTATIN
     Dosage: 20 MG, 2X/WEEK
  3. MONTELUKAST [Concomitant]
     Active Substance: MONTELUKAST SODIUM
     Dosage: 10 MG, 1X/DAY
  4. ASPIRIN. [Concomitant]
     Active Substance: ASPIRIN
     Dosage: 81 MG, 1X/DAY
  5. IMVEXXY [Suspect]
     Active Substance: ESTRADIOL
     Indication: POLLAKIURIA
     Dosage: 10 ?G, 1X/DAY AFTER DINNER
     Route: 067
     Dates: start: 20190617, end: 20190626
  6. DEXILANT [Concomitant]
     Active Substance: DEXLANSOPRAZOLE
     Dosage: 60 MG, 1X/DAY
  7. SERTRALINE [Concomitant]
     Active Substance: SERTRALINE HYDROCHLORIDE
     Dosage: 150 MG, 1X/DAY
  8. AMLODIPINE [Concomitant]
     Active Substance: AMLODIPINE BESYLATE
     Dosage: 5 MG, 1X/DAY
  9. ESTRADIOL. [Concomitant]
     Active Substance: ESTRADIOL
     Dosage: 1 MG, 3X/WEEK
  10. PROMETRIUM [Concomitant]
     Active Substance: PROGESTERONE
     Dosage: 100 MG, 3X/WEEK
  11. IMVEXXY [Suspect]
     Active Substance: ESTRADIOL
     Indication: VULVOVAGINAL DRYNESS
     Dosage: 10 ?G, 3X/WEEK AFTER DINNER
     Route: 067
     Dates: start: 20190522, end: 201906
  12. TRAZODONE [Concomitant]
     Active Substance: TRAZODONE HYDROCHLORIDE
     Dosage: 50 MG, AS NEEDED
  13. METOPROLOL SUCCINATE ER [Concomitant]
     Active Substance: METOPROLOL SUCCINATE
     Dosage: 100 MG, 1X/DAY
  14. CLOPIDOGREL [Concomitant]
     Active Substance: CLOPIDOGREL BISULFATE
     Dosage: 75 MG, 1X/DAY

REACTIONS (8)
  - Palpitations [Recovered/Resolved]
  - Fatigue [Recovering/Resolving]
  - Off label use [Recovered/Resolved]
  - Muscle spasms [Unknown]
  - Thirst [Unknown]
  - Blood pressure increased [Recovering/Resolving]
  - Dizziness [Recovering/Resolving]
  - Nervousness [Unknown]

NARRATIVE: CASE EVENT DATE: 2019
